APPROVED DRUG PRODUCT: MAGNESIUM SULFATE IN DEXTROSE 5% IN PLASTIC CONTAINER
Active Ingredient: MAGNESIUM SULFATE
Strength: 1GM/100ML
Dosage Form/Route: INJECTABLE;INJECTION
Application: A211965 | Product #001 | TE Code: AP
Applicant: BAXTER HEALTHCARE CORP
Approved: Aug 11, 2020 | RLD: No | RS: No | Type: RX